FAERS Safety Report 14347785 (Version 1)
Quarter: 2018Q1

REPORT INFORMATION
  Report Type: Spontaneous
  Country: US (occurrence: US)
  Receive Date: 20180103
  Receipt Date: 20180103
  Transmission Date: 20180509
  Serious: No
  Sender: FDA-Public Use
  Company Number: US-BAUSCH-BL-2017-021822

PATIENT
  Sex: Female

DRUGS (1)
  1. LUZU [Suspect]
     Active Substance: LULICONAZOLE
     Indication: PRODUCT USED FOR UNKNOWN INDICATION
     Route: 065
     Dates: start: 2017

REACTIONS (2)
  - Thermal burn [Unknown]
  - Adverse reaction [Unknown]

NARRATIVE: CASE EVENT DATE: 2017
